FAERS Safety Report 4955940-1 (Version None)
Quarter: 2006Q1

REPORT INFORMATION
  Report Type: 
  Country: None (occurrence: None)
  Receive Date: 20060201
  Receipt Date: 20051101
  Transmission Date: 20060701
  Serious: No
  Sender: FDA-Public Use
  Company Number: FACT0500656

PATIENT
  Age: 42 Year
  Sex: Female

DRUGS (2)
  1. FACTIVE [Suspect]
     Indication: RESPIRATORY TRACT INFECTION BACTERIAL
     Dosage: 320 MG, QD, ORAL
     Route: 048
  2. AUGMENTIN '125' [Suspect]
     Dates: start: 20050101, end: 20051001

REACTIONS (1)
  - RASH MACULO-PAPULAR [None]
